FAERS Safety Report 17599060 (Version 4)
Quarter: 2020Q4

REPORT INFORMATION
  Report Type: Report from Study
  Country: GB (occurrence: GB)
  Receive Date: 20200330
  Receipt Date: 20201015
  Transmission Date: 20210113
  Serious: No
  Sender: FDA-Public Use
  Company Number: NVSC2020GB087491

PATIENT
  Sex: Male

DRUGS (3)
  1. HYRIMOZ [Suspect]
     Active Substance: ADALIMUMAB-ADAZ
     Dosage: 40 MG, Q2W (EVERY TWO WEEKS)
     Route: 058
  2. HYRIMOZ [Suspect]
     Active Substance: ADALIMUMAB-ADAZ
     Indication: PSORIASIS
     Dosage: 1 DF (40 MG/0.8 ML) EVERY OTHER WEEK
     Route: 058
  3. HYRIMOZ [Suspect]
     Active Substance: ADALIMUMAB-ADAZ
     Dosage: 40 MG (FORTNIGHTLY)
     Route: 058

REACTIONS (6)
  - Anxiety [Unknown]
  - Dyspnoea [Recovering/Resolving]
  - Coronavirus infection [Unknown]
  - Illness [Unknown]
  - Product dose omission issue [Recovering/Resolving]
  - Ageusia [Recovering/Resolving]
